FAERS Safety Report 25066349 (Version 2)
Quarter: 2025Q1

REPORT INFORMATION
  Report Type: Spontaneous
  Country: CH (occurrence: CH)
  Receive Date: 20250312
  Receipt Date: 20250321
  Transmission Date: 20250409
  Serious: Yes (Hospitalization, Other)
  Sender: FERRING
  Company Number: None

PATIENT

DRUGS (14)
  1. MENOPUR [Suspect]
     Active Substance: FOLLITROPIN\LUTEINIZING HORMONE
     Indication: In vitro fertilisation
     Route: 065
     Dates: start: 20241129, end: 20241210
  2. TRIPTORELIN ACETATE [Suspect]
     Active Substance: TRIPTORELIN ACETATE
     Indication: In vitro fertilisation
     Route: 058
     Dates: start: 20241210, end: 20241210
  3. NORETHINDRONE [Suspect]
     Active Substance: NORETHINDRONE
     Indication: In vitro fertilisation
     Route: 036
     Dates: start: 20241122, end: 20241126
  4. ORGALUTRAN [Suspect]
     Active Substance: GANIRELIX ACETATE
     Indication: In vitro fertilisation
     Route: 058
     Dates: start: 20241205, end: 20241210
  5. CHORIOGONADOTROPIN ALFA [Suspect]
     Active Substance: CHORIOGONADOTROPIN ALFA
     Indication: In vitro fertilisation
     Route: 065
     Dates: start: 20241210, end: 20241216
  6. UTROGESTAN [Suspect]
     Active Substance: PROGESTERONE
     Indication: In vitro fertilisation
     Route: 067
     Dates: start: 20241210, end: 20241225
  7. CIMZIA [Suspect]
     Active Substance: CERTOLIZUMAB PEGOL
     Indication: Product used for unknown indication
     Dosage: 200 MG, EVERY 2ND WEEK. HOWEVER NOT ADMINISTERED ON 16-DEC-2024
     Route: 058
     Dates: start: 202311, end: 202412
  8. CIMZIA [Suspect]
     Active Substance: CERTOLIZUMAB PEGOL
     Dosage: 200 MG, MONTHLY
     Route: 058
     Dates: start: 202302, end: 202310
  9. CIMZIA [Suspect]
     Active Substance: CERTOLIZUMAB PEGOL
     Dosage: 200 MG, EVERY 2ND WEEK
     Route: 058
     Dates: start: 202112, end: 202301
  10. CLOMIPHENE [Suspect]
     Active Substance: CLOMIPHENE
     Indication: In vitro fertilisation
     Route: 048
     Dates: start: 20241129, end: 20241210
  11. IBUPROFEN [Suspect]
     Active Substance: IBUPROFEN
     Indication: Migraine
     Route: 048
  12. Andreafol [Concomitant]
     Dosage: 0.40 MG, 1 TIME DAILY
     Route: 048
  13. CHOLECALCIFEROL [Concomitant]
     Active Substance: CHOLECALCIFEROL
     Dosage: 800 I.E, 1 TIME DAILY
     Route: 048
  14. IBUPROFEN [Concomitant]
     Active Substance: IBUPROFEN
     Route: 065

REACTIONS (1)
  - Pancreatitis acute [Recovered/Resolved]

NARRATIVE: CASE EVENT DATE: 20250106
